FAERS Safety Report 5412965-X (Version None)
Quarter: 2007Q3

REPORT INFORMATION
  Report Type: 
  Country: None (occurrence: None)
  Receive Date: 20070809
  Receipt Date: 20070803
  Transmission Date: 20080115
  Serious: Yes (Other)
  Sender: FDA-Public Use
  Company Number: SP01411

PATIENT
  Sex: Female

DRUGS (2)
  1. COLAZAL [Suspect]
  2. SULFASALAZINE [Concomitant]

REACTIONS (1)
  - PERICARDITIS [None]
